FAERS Safety Report 11969295 (Version 1)
Quarter: 2016Q1

REPORT INFORMATION
  Report Type: Spontaneous
  Country: US (occurrence: None)
  Receive Date: 20160127
  Receipt Date: 20160127
  Transmission Date: 20160526
  Serious: Yes (Disabling)
  Sender: FDA-Public Use
  Company Number: None

PATIENT
  Age: 40 Year
  Sex: Male
  Weight: 92.53 kg

DRUGS (3)
  1. ZYRTEC [Concomitant]
     Active Substance: CETIRIZINE HYDROCHLORIDE
  2. ONE A DAY MENS VITAMIN [Concomitant]
  3. CYCLOBENZAPRINE 10 MG [Suspect]
     Active Substance: CYCLOBENZAPRINE
     Indication: MUSCLE SPASMS
     Route: 048
     Dates: start: 20151121, end: 20151210

REACTIONS (2)
  - Myoclonus [None]
  - Speech disorder [None]

NARRATIVE: CASE EVENT DATE: 20151125
